FAERS Safety Report 7132080-7 (Version None)
Quarter: 2010Q4

REPORT INFORMATION
  Report Type: 
  Country: None (occurrence: None)
  Receive Date: 20101130
  Receipt Date: 20101130
  Transmission Date: 20110411
  Serious: Yes (Other)
  Sender: FDA-Public Use
  Company Number: None

PATIENT
  Sex: Female
  Weight: 56.6996 kg

DRUGS (1)
  1. AMIODARONE HCL [Suspect]
     Indication: ARRHYTHMIA
     Dosage: 200MG BID PO
     Route: 048
     Dates: start: 20101126, end: 20101126

REACTIONS (3)
  - DIZZINESS [None]
  - NAUSEA [None]
  - PALPITATIONS [None]
